FAERS Safety Report 6233817-1 (Version None)
Quarter: 2009Q2

REPORT INFORMATION
  Report Type: 
  Country: None (occurrence: None)
  Receive Date: 20090618
  Receipt Date: 20090608
  Transmission Date: 20091009
  Serious: Yes (Other)
  Sender: FDA-Public Use
  Company Number: ZA-PFIZER INC-2009225045

PATIENT
  Age: 66 Year

DRUGS (1)
  1. DEPO-TESTOSTERONE [Suspect]
     Dosage: 100 MG, WEEKLY
     Route: 030

REACTIONS (1)
  - WEIGHT DECREASED [None]
